FAERS Safety Report 4329060-3 (Version None)
Quarter: 2004Q2

REPORT INFORMATION
  Report Type: 
  Country: None (occurrence: None)
  Receive Date: 20040401
  Receipt Date: 20040323
  Transmission Date: 20050107
  Serious: Yes (Life-Threatening)
  Sender: FDA-Public Use
  Company Number: JP-BRISTOL-MYERS SQUIBB COMPANY-12539631

PATIENT
  Age: 58 Year
  Sex: Male

DRUGS (8)
  1. BLEOMYCIN [Suspect]
     Indication: HODGKIN'S DISEASE
     Route: 042
     Dates: start: 20040129, end: 20040227
  2. ADRIAMYCIN PFS [Suspect]
     Indication: HODGKIN'S DISEASE
     Route: 042
     Dates: start: 20040129, end: 20040227
  3. DACARBAZINE [Suspect]
     Indication: HODGKIN'S DISEASE
     Route: 042
     Dates: start: 20040129, end: 20040227
  4. EXSAL [Suspect]
     Indication: HODGKIN'S DISEASE
     Route: 042
     Dates: start: 20040129, end: 20040227
  5. KEITEN [Concomitant]
     Route: 042
     Dates: start: 20040201, end: 20040207
  6. VANCOMYCIN [Concomitant]
     Route: 042
     Dates: start: 20040130, end: 20040209
  7. DIFLUCAN [Concomitant]
     Route: 042
     Dates: start: 20040203, end: 20040209
  8. PRIMAXIN [Concomitant]
     Route: 042
     Dates: start: 20040207, end: 20040207

REACTIONS (1)
  - STEVENS-JOHNSON SYNDROME [None]
